FAERS Safety Report 24007685 (Version 1)
Quarter: 2024Q2

REPORT INFORMATION
  Report Type: Spontaneous
  Country: US (occurrence: US)
  Receive Date: 20240625
  Receipt Date: 20240625
  Transmission Date: 20240716
  Serious: Yes (Other)
  Sender: FDA-Public Use
  Company Number: US-BRISTOL-MYERS SQUIBB COMPANY-2024-100858

PATIENT
  Age: 83 Year
  Sex: Male
  Weight: 62.14 kg

DRUGS (1)
  1. REVLIMID [Suspect]
     Active Substance: LENALIDOMIDE
     Indication: Basal cell carcinoma
     Route: 048
     Dates: start: 202405

REACTIONS (4)
  - Back pain [Recovered/Resolved]
  - Constipation [Recovered/Resolved]
  - Thrombosis [Recovered/Resolved]
  - Off label use [Unknown]

NARRATIVE: CASE EVENT DATE: 20240614
